FAERS Safety Report 5426566-0 (Version None)
Quarter: 2007Q3

REPORT INFORMATION
  Report Type: 
  Country: None (occurrence: None)
  Receive Date: 20070731
  Receipt Date: 20070606
  Transmission Date: 20080115
  Serious: No
  Sender: FDA-Public Use
  Company Number: 2006PV020980

PATIENT
  Age: 73 Year
  Sex: Male
  Weight: 96.2 kg

DRUGS (5)
  1. EXENATIDE(EXENATIDE) PEN,DISPOSABLE [Suspect]
     Indication: TYPE 2 DIABETES MELLITUS
     Dosage: 5 UG, 2/D, SUBCUTANEOUS 5 UG, DAILY (1/D), SUBCUTANEOUS
     Route: 058
     Dates: start: 20060827, end: 20070601
  2. EXENATIDE(EXENATIDE) PEN,DISPOSABLE [Suspect]
     Indication: TYPE 2 DIABETES MELLITUS
     Dosage: 5 UG, 2/D, SUBCUTANEOUS 5 UG, DAILY (1/D), SUBCUTANEOUS
     Route: 058
     Dates: start: 20070601
  3. AVANDIA [Concomitant]
  4. METFORMIN HCL [Concomitant]
  5. ACTOS [Concomitant]

REACTIONS (3)
  - NAUSEA [None]
  - THERAPEUTIC RESPONSE UNEXPECTED [None]
  - VOMITING [None]
